FAERS Safety Report 19511082 (Version 11)
Quarter: 2022Q2

REPORT INFORMATION
  Report Type: Spontaneous
  Country: CA (occurrence: CA)
  Receive Date: 20210709
  Receipt Date: 20220617
  Transmission Date: 20220721
  Serious: Yes (Other)
  Sender: FDA-Public Use
  Company Number: CA-CELLTRION INC.-2019CA025505

PATIENT

DRUGS (25)
  1. INFLECTRA [Suspect]
     Active Substance: INFLIXIMAB-DYYB
     Indication: Crohn^s disease
     Dosage: 1000 MG EVERY 4 WEEKS
     Route: 042
     Dates: start: 20191108, end: 20201123
  2. INFLECTRA [Suspect]
     Active Substance: INFLIXIMAB-DYYB
     Dosage: 1000 MG EVERY 4 WEEKS
     Route: 042
     Dates: start: 20191206
  3. INFLECTRA [Suspect]
     Active Substance: INFLIXIMAB-DYYB
     Dosage: 1000 MG EVERY 4 WEEKS
     Route: 042
     Dates: start: 20200113
  4. INFLECTRA [Suspect]
     Active Substance: INFLIXIMAB-DYYB
     Dosage: 1000 MG EVERY 4 WEEKS
     Route: 042
     Dates: start: 20200213
  5. INFLECTRA [Suspect]
     Active Substance: INFLIXIMAB-DYYB
     Dosage: 1000 MG EVERY 4 WEEKS
     Route: 042
     Dates: start: 20200416
  6. INFLECTRA [Suspect]
     Active Substance: INFLIXIMAB-DYYB
     Dosage: 1000 MG EVERY 4 WEEKS
     Route: 042
     Dates: start: 20200608
  7. INFLECTRA [Suspect]
     Active Substance: INFLIXIMAB-DYYB
     Dosage: 1000 MG EVERY 4 WEEKS
     Route: 042
     Dates: start: 20200608
  8. INFLECTRA [Suspect]
     Active Substance: INFLIXIMAB-DYYB
     Dosage: 1000 MG EVERY 4 WEEKS
     Route: 042
     Dates: start: 20200608
  9. INFLECTRA [Suspect]
     Active Substance: INFLIXIMAB-DYYB
     Dosage: 1000MG EVERY 4 WEEKS
     Route: 042
     Dates: start: 20200710
  10. INFLECTRA [Suspect]
     Active Substance: INFLIXIMAB-DYYB
     Dosage: 1000MG EVERY 4 WEEKS
     Route: 042
     Dates: start: 20200710
  11. INFLECTRA [Suspect]
     Active Substance: INFLIXIMAB-DYYB
     Dosage: 1000MG EVERY 4 WEEKS
     Route: 042
     Dates: start: 20200810
  12. INFLECTRA [Suspect]
     Active Substance: INFLIXIMAB-DYYB
     Dosage: 1000MG EVERY 4 WEEKS
     Route: 042
     Dates: start: 20200810
  13. INFLECTRA [Suspect]
     Active Substance: INFLIXIMAB-DYYB
     Dosage: 1000MG EVERY 4 WEEKS
     Route: 042
     Dates: start: 20200917
  14. INFLECTRA [Suspect]
     Active Substance: INFLIXIMAB-DYYB
     Dosage: 1000MG EVERY 4 WEEKS
     Route: 042
     Dates: start: 20201020
  15. INFLECTRA [Suspect]
     Active Substance: INFLIXIMAB-DYYB
     Dosage: 1000MG EVERY 4 WEEKS
     Route: 042
     Dates: start: 20201123
  16. INFLECTRA [Suspect]
     Active Substance: INFLIXIMAB-DYYB
     Dosage: 1000 MG RE-INDUCTION/ Q 0, 2, 6 WEEKS,MAINTENANCE EVERY 4 WEEKS
     Route: 042
     Dates: start: 20210629
  17. INFLECTRA [Suspect]
     Active Substance: INFLIXIMAB-DYYB
     Dosage: 1000 MG RE-INDUCTION/ Q 0, 2, 6 WEEKS,MAINTENANCE EVERY 4 WEEKS
     Route: 042
     Dates: start: 20210726
  18. INFLECTRA [Suspect]
     Active Substance: INFLIXIMAB-DYYB
     Dosage: 1000 MG RE-INDUCTION/ Q 0, 2, 6 WEEKS,MAINTENANCE EVERY 4 WEEKS
     Route: 042
     Dates: start: 20210726
  19. INFLECTRA [Suspect]
     Active Substance: INFLIXIMAB-DYYB
     Dosage: 1000 MG RE-INDUCTION/ Q 0, 2, 6 WEEKS,MAINTENANCE EVERY 4 WEEKS
     Route: 042
     Dates: start: 20211001
  20. INFLECTRA [Suspect]
     Active Substance: INFLIXIMAB-DYYB
     Dosage: 1000 MG RE-INDUCTION/ Q 0, 2, 6 WEEKS,MAINTENANCE EVERY 4 WEEKS
     Route: 042
     Dates: start: 20211029
  21. INFLECTRA [Suspect]
     Active Substance: INFLIXIMAB-DYYB
     Dosage: 1000 MG RE-INDUCTION/ Q 0, 2, 6 WEEKS,MAINTENANCE EVERY 4 WEEKS
     Route: 042
     Dates: start: 20220110
  22. INFLECTRA [Suspect]
     Active Substance: INFLIXIMAB-DYYB
     Dosage: 1000 MG RE-INDUCTION/ Q 0, 2, 6 WEEKS,MAINTENANCE EVERY 4 WEEKS
     Route: 042
     Dates: start: 20220228
  23. INFLECTRA [Suspect]
     Active Substance: INFLIXIMAB-DYYB
     Dosage: 1000 MG RE-INDUCTION/ Q 0, 2, 6 WEEKS,MAINTENANCE EVERY 4 WEEKS
     Route: 042
     Dates: start: 20220404
  24. INFLECTRA [Suspect]
     Active Substance: INFLIXIMAB-DYYB
     Dosage: 1000 MG RE-INDUCTION/ Q 0, 2, 6 WEEKS,MAINTENANCE EVERY 4 WEEKS
     Route: 042
     Dates: start: 20220609
  25. METHOTREXATE [Concomitant]
     Active Substance: METHOTREXATE
     Dosage: 10 MG, WEEKLY
     Route: 065

REACTIONS (32)
  - Crohn^s disease [Unknown]
  - Weight fluctuation [Not Recovered/Not Resolved]
  - Condition aggravated [Recovering/Resolving]
  - Drug level below therapeutic [Recovered/Resolved]
  - Off label use [Unknown]
  - Intentional product use issue [Unknown]
  - Off label use [Unknown]
  - Off label use [Unknown]
  - Inappropriate schedule of product administration [Unknown]
  - Blood pressure increased [Unknown]
  - Cough [Recovered/Resolved]
  - Chest discomfort [Recovered/Resolved]
  - Oropharyngeal pain [Recovered/Resolved]
  - Skin abrasion [Unknown]
  - Skin infection [Unknown]
  - Arthralgia [Unknown]
  - Heart rate irregular [Unknown]
  - Influenza like illness [Not Recovered/Not Resolved]
  - Pyrexia [Not Recovered/Not Resolved]
  - Dyspnoea [Recovered/Resolved]
  - Feeling hot [Recovered/Resolved]
  - Hypoaesthesia [Recovered/Resolved]
  - Palpitations [Recovered/Resolved]
  - Flushing [Recovered/Resolved]
  - Skin warm [Recovered/Resolved]
  - Dry skin [Recovered/Resolved]
  - Emotional distress [Recovered/Resolved]
  - Pain [Not Recovered/Not Resolved]
  - Chest discomfort [Unknown]
  - Urticaria [Unknown]
  - Pruritus [Unknown]
  - Arthralgia [Unknown]

NARRATIVE: CASE EVENT DATE: 20191108
